FAERS Safety Report 9580392 (Version 1)
Quarter: 2013Q3

REPORT INFORMATION
  Report Type: Spontaneous
  Country: US (occurrence: None)
  Receive Date: 20130916
  Receipt Date: 20130916
  Transmission Date: 20140515
  Serious: Yes (Other)
  Sender: FDA-Public Use
  Company Number: JPI-P-032161

PATIENT
  Age: 51 Year
  Sex: Female
  Weight: 117.94 kg

DRUGS (1)
  1. XYREM [Suspect]
     Indication: INSOMNIA
     Route: 048
     Dates: start: 20130503

REACTIONS (9)
  - Depression [None]
  - Insomnia [None]
  - Swelling face [None]
  - Dysgeusia [None]
  - Gingival recession [None]
  - Dry mouth [None]
  - Condition aggravated [None]
  - Headache [None]
  - Anxiety [None]
